FAERS Safety Report 9946625 (Version 1)
Quarter: 2014Q1

REPORT INFORMATION
  Report Type: Report from Study
  Country: US (occurrence: US)
  Receive Date: 20140303
  Receipt Date: 20140303
  Transmission Date: 20141002
  Serious: No
  Sender: FDA-Public Use
  Company Number: US-ABBVIE-13P-163-1063212-00

PATIENT
  Age: 50 Year
  Sex: Female

DRUGS (3)
  1. HUMIRA [Suspect]
     Indication: ANKYLOSING SPONDYLITIS
     Route: 058
  2. MOBIC [Concomitant]
     Indication: INFLAMMATION
  3. HYDROCODONE [Concomitant]
     Indication: PAIN
     Dosage: 5/500 MG

REACTIONS (1)
  - Injection site bruising [Recovering/Resolving]
